FAERS Safety Report 25998394 (Version 2)
Quarter: 2025Q4

REPORT INFORMATION
  Report Type: Spontaneous
  Country: EU (occurrence: EU)
  Receive Date: 20251105
  Receipt Date: 20251121
  Transmission Date: 20260117
  Serious: Yes (Hospitalization)
  Sender: TEVA
  Company Number: None

PATIENT
  Age: 29 Year
  Sex: Female
  Weight: 126 kg

DRUGS (2)
  1. FLUOXETINE [Suspect]
     Active Substance: FLUOXETINE HYDROCHLORIDE
     Indication: Poisoning deliberate
     Dosage: TIME INTERVAL: TOTAL: 40 MG X 20 TABLETS, SINGLE DOSE, FLUOXETINE BASE
     Route: 048
     Dates: start: 20250929, end: 20250929
  2. LEVOMEPROMAZINE [Suspect]
     Active Substance: LEVOMEPROMAZINE
     Indication: Poisoning deliberate
     Dosage: TIME INTERVAL: TOTAL: 25 MG X 20 TABLETS, 1 SINGLE DOSE, FILM-COATED SCORED TABLET
     Route: 048
     Dates: start: 20250929, end: 20250929

REACTIONS (3)
  - Poisoning deliberate [Recovered/Resolved]
  - Electrocardiogram QT prolonged [Recovering/Resolving]
  - Somnolence [Recovering/Resolving]

NARRATIVE: CASE EVENT DATE: 20250929
